FAERS Safety Report 14481993 (Version 3)
Quarter: 2018Q2

REPORT INFORMATION
  Report Type: Spontaneous
  Country: US (occurrence: US)
  Receive Date: 20180202
  Receipt Date: 20180522
  Transmission Date: 20180711
  Serious: Yes (Death)
  Sender: FDA-Public Use
  Company Number: US-TAIHO ONCOLOGY INC-EU-2018-00076

PATIENT
  Age: 61 Year
  Sex: Male

DRUGS (1)
  1. LONSURF [Suspect]
     Active Substance: TIPIRACIL HYDROCHLORIDE\TRIFLURIDINE
     Indication: COLON CANCER
     Dosage: LATEST CYCLE STARTED ON 19MAR2018
     Route: 048
     Dates: start: 20171214

REACTIONS (5)
  - Death [Fatal]
  - Hiccups [Unknown]
  - Decreased appetite [Unknown]
  - Neoplasm skin [Unknown]
  - Nausea [Unknown]

NARRATIVE: CASE EVENT DATE: 20180118
